FAERS Safety Report 22022101 (Version 2)
Quarter: 2023Q1

REPORT INFORMATION
  Report Type: Spontaneous
  Country: GB (occurrence: GB)
  Receive Date: 20230222
  Receipt Date: 20230303
  Transmission Date: 20230418
  Serious: Yes (Death, Other)
  Sender: FDA-Public Use
  Company Number: None

PATIENT
  Age: 74 Year
  Sex: Male
  Weight: 73.47 kg

DRUGS (10)
  1. LEVOFLOXACIN [Suspect]
     Active Substance: LEVOFLOXACIN
     Dosage: UNK
     Route: 042
     Dates: start: 2017
  2. LEVOFLOXACIN [Suspect]
     Active Substance: LEVOFLOXACIN
     Indication: Pneumonia
     Dosage: 500 MG, 1X/DAY (FOR 10 DOSES ON DISCHARGE  FOLLOWING INTRAVENOUS DOSE IN HOSPITAL.)
     Route: 048
     Dates: start: 20171121
  3. AMOXICILLIN [Concomitant]
     Active Substance: AMOXICILLIN
     Dosage: UNK
  4. BISOPROLOL [Concomitant]
     Active Substance: BISOPROLOL
     Dosage: UNK
  5. CHOLECALCIFEROL [Concomitant]
     Active Substance: CHOLECALCIFEROL
     Dosage: UNK
  6. CLOPIDOGREL [Concomitant]
     Active Substance: CLOPIDOGREL BISULFATE
     Dosage: UNK
  7. FUROSEMIDE [Concomitant]
     Active Substance: FUROSEMIDE
     Dosage: UNK
  8. PREDNISOLONE [Concomitant]
     Active Substance: PREDNISOLONE
     Dosage: UNK
  9. RIVAROXABAN [Concomitant]
     Active Substance: RIVAROXABAN
     Dosage: UNK
  10. ALBUTEROL [Concomitant]
     Active Substance: ALBUTEROL
     Dosage: UNK

REACTIONS (15)
  - Pneumonia aspiration [Fatal]
  - Neuropathy peripheral [Not Recovered/Not Resolved]
  - Multiple system atrophy [Not Recovered/Not Resolved]
  - Wheelchair user [Unknown]
  - Gait disturbance [Unknown]
  - Pain [Unknown]
  - Tendon rupture [Not Recovered/Not Resolved]
  - Balance disorder [Unknown]
  - Skin discolouration [Unknown]
  - Joint swelling [Not Recovered/Not Resolved]
  - Chronic fatigue syndrome [Not Recovered/Not Resolved]
  - Decreased immune responsiveness [Not Recovered/Not Resolved]
  - Dysphagia [Not Recovered/Not Resolved]
  - Parkinsonism [Not Recovered/Not Resolved]
  - Asthenia [Unknown]

NARRATIVE: CASE EVENT DATE: 20170101
